FAERS Safety Report 12790840 (Version 1)
Quarter: 2016Q3

REPORT INFORMATION
  Report Type: Spontaneous
  Country: US (occurrence: US)
  Receive Date: 20160929
  Receipt Date: 20160929
  Transmission Date: 20161109
  Serious: Yes (Other)
  Sender: FDA-Public Use
  Company Number: PHEH2016US024353

PATIENT
  Age: 80 Year
  Sex: Female

DRUGS (1)
  1. MEKINIST [Suspect]
     Active Substance: TRAMETINIB DIMETHYL SULFOXIDE
     Indication: OVARIAN CANCER STAGE IV
     Dosage: 2 MG, QD
     Route: 048
     Dates: start: 20160902, end: 20160913

REACTIONS (3)
  - Product use issue [Unknown]
  - Gastrointestinal haemorrhage [Unknown]
  - Haematemesis [Unknown]

NARRATIVE: CASE EVENT DATE: 20160913
